FAERS Safety Report 8056341-2 (Version None)
Quarter: 2012Q1

REPORT INFORMATION
  Report Type: 
  Country: None (occurrence: None)
  Receive Date: 20120119
  Receipt Date: 20120109
  Transmission Date: 20120608
  Serious: Yes (Hospitalization, Other)
  Sender: FDA-Public Use
  Company Number: US-ELI_LILLY_AND_COMPANY-US201201002972

PATIENT
  Sex: Female

DRUGS (10)
  1. PRILOSEC [Concomitant]
     Indication: GASTROOESOPHAGEAL REFLUX DISEASE
  2. TYLENOL-500 [Concomitant]
     Indication: ARTHRITIS
  3. VITAMIN TAB [Concomitant]
  4. TYLENOL (CAPLET) [Concomitant]
     Dosage: UNK
  5. DILAUDID [Concomitant]
     Dosage: UNK
  6. COUMADIN [Concomitant]
     Dosage: UNK
  7. LIPITOR [Concomitant]
     Dosage: UNK, QOD
  8. CALCIUM [Concomitant]
  9. FORTEO [Suspect]
     Dosage: 20 UG, QD
     Route: 065
     Dates: start: 20120108
  10. FORTEO [Suspect]
     Indication: OSTEOPOROSIS
     Dosage: 20 UG, QD
     Route: 065
     Dates: start: 20111201, end: 20120105

REACTIONS (2)
  - DRUG DOSE OMISSION [None]
  - FEMUR FRACTURE [None]
